FAERS Safety Report 7138047 (Version 42)
Quarter: 2015Q2

REPORT INFORMATION
  Report Type: Report from Study
  Country: CA (occurrence: CA)
  Receive Date: 20091002
  Receipt Date: 20150428
  Transmission Date: 20150821
  Serious: Yes (Other)
  Sender: FDA-Public Use
  Company Number: PHHY2009CA35869

PATIENT
  Age: 49 Year
  Sex: Female

DRUGS (19)
  1. SANDOSTATIN LAR DEPOT [Suspect]
     Active Substance: OCTREOTIDE ACETATE
     Dosage: 20 MG, EVERY 4 WEEKS
     Route: 030
     Dates: start: 20150317
  2. LORAZEPAM. [Concomitant]
     Active Substance: LORAZEPAM
     Indication: PRODUCT USED FOR UNKNOWN INDICATION
     Route: 065
  3. EFFEXOR [Concomitant]
     Active Substance: VENLAFAXINE HYDROCHLORIDE
     Indication: PRODUCT USED FOR UNKNOWN INDICATION
     Route: 065
  4. SYMBICORT [Concomitant]
     Active Substance: BUDESONIDE\FORMOTEROL FUMARATE DIHYDRATE
     Dosage: 100 OT, UNK
     Route: 065
  5. SANDOSTATIN LAR DEPOT [Suspect]
     Active Substance: OCTREOTIDE ACETATE
     Dosage: 20 MG, EVERY 4 WEEKS
     Route: 030
     Dates: start: 20110705
  6. ELTROXIN [Concomitant]
     Active Substance: LEVOTHYROXINE
     Indication: PRODUCT USED FOR UNKNOWN INDICATION
     Route: 065
  7. CLONAZEPAM. [Concomitant]
     Active Substance: CLONAZEPAM
     Indication: PRODUCT USED FOR UNKNOWN INDICATION
     Route: 065
  8. RABEPRAZOL [Concomitant]
     Indication: PRODUCT USED FOR UNKNOWN INDICATION
     Route: 065
  9. SANDOSTATIN [Suspect]
     Active Substance: OCTREOTIDE ACETATE
     Indication: ACROMEGALY
     Dosage: UNK UNK, QOD
     Route: 058
  10. ALERTEC [Concomitant]
     Active Substance: MODAFINIL
     Indication: PRODUCT USED FOR UNKNOWN INDICATION
     Route: 065
  11. SYMBICORT [Concomitant]
     Active Substance: BUDESONIDE\FORMOTEROL FUMARATE DIHYDRATE
     Dosage: 2 OT, QD (2 PUFF DAILY)
     Route: 065
  12. CETIRIZINE [Concomitant]
     Active Substance: CETIRIZINE HYDROCHLORIDE
     Indication: PRODUCT USED FOR UNKNOWN INDICATION
     Route: 065
  13. SANDOSTATIN LAR DEPOT [Suspect]
     Active Substance: OCTREOTIDE ACETATE
     Dosage: 20 MG, EVERY 4 WEEKS
     Route: 030
  14. SANDOSTATIN LAR DEPOT [Suspect]
     Active Substance: OCTREOTIDE ACETATE
     Indication: ACROMEGALY
     Dosage: 20 MG, EVERY 6 WEEKS
     Route: 030
     Dates: start: 20050705
  15. SANDOSTATIN LAR DEPOT [Suspect]
     Active Substance: OCTREOTIDE ACETATE
     Dosage: 20 MG, QMO
     Route: 030
     Dates: start: 20090303
  16. SYMBICORT [Concomitant]
     Active Substance: BUDESONIDE\FORMOTEROL FUMARATE DIHYDRATE
     Indication: PRODUCT USED FOR UNKNOWN INDICATION
     Dosage: 200 OT, UNK
     Route: 065
     Dates: end: 201407
  17. SYMBICORT [Concomitant]
     Active Substance: BUDESONIDE\FORMOTEROL FUMARATE DIHYDRATE
     Dosage: 1 OT, QD (1 PUFF DAILY)
     Route: 065
  18. NEXIUM [Concomitant]
     Active Substance: ESOMEPRAZOLE MAGNESIUM
     Indication: PRODUCT USED FOR UNKNOWN INDICATION
     Route: 065
  19. LEVOTHYROXIN [Concomitant]
     Active Substance: LEVOTHYROXINE
     Indication: PRODUCT USED FOR UNKNOWN INDICATION
     Route: 065

REACTIONS (68)
  - Fatigue [Unknown]
  - Rash [Recovered/Resolved]
  - Headache [Unknown]
  - Eyelid disorder [Unknown]
  - Peripheral swelling [Unknown]
  - Groin pain [Unknown]
  - Asthma [Not Recovered/Not Resolved]
  - Anger [Unknown]
  - Pain in extremity [Unknown]
  - Chest pain [Unknown]
  - Dysstasia [Unknown]
  - Pruritus [Unknown]
  - Dehydration [Recovered/Resolved]
  - Nausea [Recovered/Resolved]
  - Cough [Unknown]
  - Sluggishness [Unknown]
  - Oropharyngeal pain [Unknown]
  - Arthralgia [Recovering/Resolving]
  - Bronchitis [Unknown]
  - Chest discomfort [Unknown]
  - Erythema [Unknown]
  - Dermatitis [Unknown]
  - Flatulence [Unknown]
  - Ulcer [Unknown]
  - Photosensitivity reaction [Unknown]
  - Rash pustular [Recovering/Resolving]
  - Influenza like illness [Recovered/Resolved]
  - Lower respiratory tract infection [Unknown]
  - Diarrhoea [Unknown]
  - Vomiting [Recovered/Resolved]
  - Productive cough [Unknown]
  - Nasal congestion [Unknown]
  - Mouth ulceration [Unknown]
  - Axillary pain [Unknown]
  - Pyrexia [Unknown]
  - Inflammation [Unknown]
  - Burning sensation [Unknown]
  - Asthenia [Unknown]
  - Heart rate increased [Unknown]
  - Speech disorder [Not Recovered/Not Resolved]
  - Facial pain [Recovering/Resolving]
  - Flushing [Recovering/Resolving]
  - Dyspnoea [Unknown]
  - Back pain [Unknown]
  - Wrong technique in drug usage process [Unknown]
  - Throat irritation [Unknown]
  - Swelling [Recovered/Resolved]
  - Musculoskeletal pain [Unknown]
  - Hyperhidrosis [Unknown]
  - Skin discolouration [Unknown]
  - Vulvovaginal mycotic infection [Unknown]
  - Confusional state [Not Recovered/Not Resolved]
  - Cellulitis [Unknown]
  - Hypersomnia [Recovering/Resolving]
  - Anxiety [Unknown]
  - Gait disturbance [Unknown]
  - Movement disorder [Unknown]
  - Abdominal distension [Unknown]
  - Swelling face [Recovering/Resolving]
  - Glucose tolerance impaired [Unknown]
  - Memory impairment [Recovering/Resolving]
  - Blood pressure increased [Unknown]
  - Rosacea [Unknown]
  - Malaise [Unknown]
  - Thyroid disorder [Unknown]
  - Sciatic nerve injury [Unknown]
  - Dry skin [Unknown]
  - Rash pruritic [Unknown]

NARRATIVE: CASE EVENT DATE: 20100305
